FAERS Safety Report 18209519 (Version 1)
Quarter: 2020Q3

REPORT INFORMATION
  Report Type: Spontaneous
  Country: US (occurrence: US)
  Receive Date: 20200828
  Receipt Date: 20200828
  Transmission Date: 20201103
  Serious: No
  Sender: FDA-Public Use
  Company Number: US-BRISTOL-MYERS SQUIBB COMPANY-BMS-2020-069556

PATIENT
  Sex: Female
  Weight: 63.96 kg

DRUGS (5)
  1. LORBRENA [Suspect]
     Active Substance: LORLATINIB
     Indication: LUNG NEOPLASM MALIGNANT
     Dosage: 25 MILLIGRAM, QD
     Route: 065
  2. ZYKADIA [Concomitant]
     Active Substance: CERITINIB
     Indication: PRODUCT USED FOR UNKNOWN INDICATION
     Dosage: UNK
     Route: 065
  3. SIMVASTATIN. [Suspect]
     Active Substance: SIMVASTATIN
     Indication: BLOOD CHOLESTEROL
     Dosage: 10 TAB, QD
     Route: 065
     Dates: start: 201904, end: 202005
  4. ELIQUIS [Suspect]
     Active Substance: APIXABAN
     Indication: CEREBROVASCULAR ACCIDENT PROPHYLAXIS
     Dosage: 2.5 MILLIGRAM, QD
     Route: 048
     Dates: start: 2017
  5. LORBRENA [Suspect]
     Active Substance: LORLATINIB
     Dosage: UNK, QOD
     Route: 065

REACTIONS (10)
  - Peripheral swelling [Unknown]
  - Off label use [Unknown]
  - Blood cholesterol [Unknown]
  - Cardiac murmur [Unknown]
  - Amnesia [Recovering/Resolving]
  - Weight increased [Unknown]
  - Liver disorder [Unknown]
  - Dyspnoea [Unknown]
  - Chest pain [Recovered/Resolved]
  - Visual impairment [Unknown]
